FAERS Safety Report 9793047 (Version 1)
Quarter: 2013Q4

REPORT INFORMATION
  Report Type: Spontaneous
  Country: US (occurrence: None)
  Receive Date: 20131231
  Receipt Date: 20131231
  Transmission Date: 20140711
  Serious: No
  Sender: FDA-Public Use
  Company Number: None

PATIENT
  Age: 60 Year
  Sex: Male
  Weight: 81.19 kg

DRUGS (1)
  1. OXCARBAMAZEPINE [Suspect]
     Indication: COMPLEX PARTIAL SEIZURES
     Dates: start: 20131001, end: 20131225

REACTIONS (6)
  - Tremor [None]
  - Anxiety [None]
  - Depression [None]
  - Product colour issue [None]
  - Product shape issue [None]
  - Product substitution issue [None]
